FAERS Safety Report 5701448-5 (Version None)
Quarter: 2008Q2

REPORT INFORMATION
  Report Type: 
  Country: None (occurrence: None)
  Receive Date: 20080407
  Receipt Date: 20080321
  Transmission Date: 20081010
  Serious: Yes (Other)
  Sender: FDA-Public Use
  Company Number: 2008JP001470

PATIENT
  Age: 19 Year
  Sex: Female

DRUGS (2)
  1. PROGRAF [Suspect]
     Indication: LIVER TRANSPLANT
  2. STEROID FORMULATION UNKNOWN [Concomitant]

REACTIONS (4)
  - INTESTINAL FISTULA [None]
  - SEPSIS [None]
  - WOUND DECOMPOSITION [None]
  - WOUND INFECTION STAPHYLOCOCCAL [None]
